FAERS Safety Report 13853075 (Version 1)
Quarter: 2017Q3

REPORT INFORMATION
  Report Type: Spontaneous
  Country: US (occurrence: US)
  Receive Date: 20170809
  Receipt Date: 20170809
  Transmission Date: 20171127
  Serious: Yes (Hospitalization)
  Sender: FDA-Public Use
  Company Number: None

PATIENT
  Age: 91 Year
  Sex: Female
  Weight: 62 kg

DRUGS (3)
  1. METOPROLOL. [Concomitant]
     Active Substance: METOPROLOL
  2. OXYBUTYNIN [Concomitant]
     Active Substance: OXYBUTYNIN
  3. LINEZOLID. [Suspect]
     Active Substance: LINEZOLID
     Indication: CELLULITIS
     Route: 048

REACTIONS (3)
  - Drug interaction [None]
  - Drug hypersensitivity [None]
  - Hallucination, visual [None]

NARRATIVE: CASE EVENT DATE: 20170806
